FAERS Safety Report 5958643-X (Version None)
Quarter: 2008Q4

REPORT INFORMATION
  Report Type: 
  Country: None (occurrence: None)
  Receive Date: 20081110
  Receipt Date: 20080922
  Transmission Date: 20090506
  Serious: No
  Sender: FDA-Public Use
  Company Number: 2008US002533

PATIENT
  Age: 68 Year
  Sex: Female

DRUGS (1)
  1. LEXISCAN [Suspect]
     Indication: SCAN MYOCARDIAL PERFUSION

REACTIONS (1)
  - INFUSION SITE PAIN [None]
